FAERS Safety Report 20826265 (Version 2)
Quarter: 2022Q3

REPORT INFORMATION
  Report Type: Report from Study
  Country: CZ (occurrence: CZ)
  Receive Date: 20220513
  Receipt Date: 20220913
  Transmission Date: 20221027
  Serious: Yes (Hospitalization)
  Sender: FDA-Public Use
  Company Number: CZ-SA-SAC20220311001066

PATIENT
  Age: 70 Year
  Sex: Female

DRUGS (120)
  1. ISATUXIMAB [Suspect]
     Active Substance: ISATUXIMAB
     Indication: Plasma cell myeloma
     Dosage: 840 MG
     Dates: start: 20210120, end: 20210120
  2. ISATUXIMAB [Suspect]
     Active Substance: ISATUXIMAB
     Dosage: 840 MG
     Dates: start: 20220216, end: 20220216
  3. CARFILZOMIB [Suspect]
     Active Substance: CARFILZOMIB
     Dosage: 108 MG
     Dates: start: 20210120, end: 20210120
  4. CARFILZOMIB [Suspect]
     Active Substance: CARFILZOMIB
     Dosage: 108 MG
     Dates: start: 20220223, end: 20220223
  5. LENALIDOMIDE [Suspect]
     Active Substance: LENALIDOMIDE
     Dosage: 15 MG
     Dates: start: 20210120, end: 20210120
  6. LENALIDOMIDE [Suspect]
     Active Substance: LENALIDOMIDE
     Dosage: 15 MG
     Dates: start: 20220301, end: 20220301
  7. DEXAMETHASONE [Suspect]
     Active Substance: DEXAMETHASONE
     Dosage: 50 ML
     Dates: start: 20210120, end: 20210120
  8. DEXAMETHASONE [Suspect]
     Active Substance: DEXAMETHASONE
     Dosage: 50 ML
     Dates: start: 20220223, end: 20220223
  9. BISOPROLOL [Concomitant]
     Active Substance: BISOPROLOL
     Indication: Essential hypertension
     Dosage: UNK
     Dates: start: 20050101
  10. BISOPROLOL [Concomitant]
     Active Substance: BISOPROLOL
     Indication: Prophylaxis
     Dosage: UNK
     Dates: start: 20220428, end: 20220502
  11. CIPRALEX [Concomitant]
     Active Substance: ESCITALOPRAM OXALATE
     Indication: Depression
     Dosage: UNK
     Dates: start: 20180101
  12. NEUROL COMP. [Concomitant]
     Indication: Prophylaxis
     Dosage: UNK
     Dates: start: 20190101
  13. NEUROL COMP. [Concomitant]
     Dosage: UNK
     Dates: start: 20220309, end: 20220313
  14. NEUROL COMP. [Concomitant]
     Dosage: UNK
     Dates: start: 20220427, end: 20220502
  15. NOVALGIN (METAMIZOLE SODIUM) [Concomitant]
     Active Substance: METAMIZOLE SODIUM
     Indication: Plasma cell myeloma
     Dosage: UNK
     Dates: start: 20201218
  16. NOVALGIN (METAMIZOLE SODIUM) [Concomitant]
     Active Substance: METAMIZOLE SODIUM
     Indication: Prophylaxis
     Dosage: UNK
     Dates: start: 20210817, end: 20210817
  17. NOVALGIN (METAMIZOLE SODIUM) [Concomitant]
     Active Substance: METAMIZOLE SODIUM
     Indication: Pneumonia
     Dosage: UNK UNK, TID
     Dates: start: 20210818, end: 20210830
  18. NOVALGIN (METAMIZOLE SODIUM) [Concomitant]
     Active Substance: METAMIZOLE SODIUM
     Dosage: UNK
     Dates: start: 20220501, end: 20220502
  19. PARALEN [PARACETAMOL] [Concomitant]
     Indication: Prophylaxis
     Dosage: UNK
     Dates: start: 20210203
  20. ZYRTEC [Concomitant]
     Active Substance: CETIRIZINE HYDROCHLORIDE
     Indication: Prophylaxis
     Dosage: UNK
     Dates: start: 20210203
  21. OMEPRAZOLE [Concomitant]
     Active Substance: OMEPRAZOLE
     Indication: Prophylaxis
     Dosage: UNK
     Dates: start: 20210210
  22. CIPROFLOXACIN [Concomitant]
     Active Substance: CIPROFLOXACIN
     Indication: C-reactive protein increased
     Dosage: UNK
     Dates: start: 20210224, end: 20210302
  23. CIPROFLOXACIN [Concomitant]
     Active Substance: CIPROFLOXACIN
     Indication: Respiratory tract infection
     Dosage: UNK
     Dates: start: 20211201, end: 20211208
  24. CIPROFLOXACIN [Concomitant]
     Active Substance: CIPROFLOXACIN
     Indication: Mucosal inflammation
     Dosage: UNK
     Dates: start: 20210815, end: 20210815
  25. OMEPRAZOLE [Concomitant]
     Active Substance: OMEPRAZOLE
     Indication: Oesophagitis
     Dosage: UNK;20 MINS BEFORE EATING IF NEEDED
     Dates: start: 19780101, end: 20210202
  26. OMEPRAZOLE [Concomitant]
     Active Substance: OMEPRAZOLE
     Indication: Prophylaxis
     Dosage: UNK
     Dates: start: 20210203, end: 20210203
  27. FLUCONAZOLE [Concomitant]
     Active Substance: FLUCONAZOLE
     Indication: C-reactive protein increased
     Dosage: UNK
     Dates: start: 20210310, end: 20210318
  28. FLUCONAZOLE [Concomitant]
     Active Substance: FLUCONAZOLE
     Indication: Mucosal inflammation
     Dosage: UNK
     Dates: start: 20210816, end: 20210823
  29. FLUCONAZOLE [Concomitant]
     Active Substance: FLUCONAZOLE
     Indication: Oral candidiasis
  30. ZOMIKOS [Concomitant]
     Indication: Prophylaxis
     Dosage: UNK
     Dates: start: 20210210
  31. AFITEN [Concomitant]
     Indication: Essential hypertension
     Dosage: UNK
     Dates: start: 20201221
  32. TELMISARTAN [Concomitant]
     Active Substance: TELMISARTAN
     Indication: Essential hypertension
     Dosage: UNK
     Dates: start: 20201218, end: 20210302
  33. TELMISARTAN [Concomitant]
     Active Substance: TELMISARTAN
     Indication: Prophylaxis
     Dosage: UNK
     Dates: start: 20210303, end: 20210702
  34. TELMISARTAN [Concomitant]
     Active Substance: TELMISARTAN
     Dosage: UNK
     Dates: start: 20210702
  35. TELMISARTAN [Concomitant]
     Active Substance: TELMISARTAN
     Dosage: UNK
     Dates: start: 20220428, end: 20220502
  36. VALACYCLOVIR HYDROCHLORIDE [Concomitant]
     Active Substance: VALACYCLOVIR HYDROCHLORIDE
     Indication: Prophylaxis
     Dosage: UNK
     Dates: start: 20210203, end: 20211111
  37. VALACYCLOVIR HYDROCHLORIDE [Concomitant]
     Active Substance: VALACYCLOVIR HYDROCHLORIDE
     Dosage: UNK
     Dates: start: 20211123
  38. POTASSIUM CHLORIDE [Concomitant]
     Active Substance: POTASSIUM CHLORIDE
     Indication: Prophylaxis
     Dosage: UNK
     Dates: start: 20210310, end: 20210316
  39. POTASSIUM CHLORIDE [Concomitant]
     Active Substance: POTASSIUM CHLORIDE
     Indication: Hypokalaemia
     Dosage: UNK
     Dates: start: 20210317, end: 20210324
  40. POTASSIUM CHLORIDE [Concomitant]
     Active Substance: POTASSIUM CHLORIDE
     Dosage: UNK
     Dates: start: 20210704, end: 20210704
  41. POTASSIUM CHLORIDE [Concomitant]
     Active Substance: POTASSIUM CHLORIDE
     Dosage: UNK
     Dates: start: 20211208, end: 20211222
  42. POTASSIUM CHLORIDE [Concomitant]
     Active Substance: POTASSIUM CHLORIDE
     Dosage: UNK;UP TO 4 GRAMS A DAY
     Dates: start: 20210824, end: 20210907
  43. POTASSIUM CHLORIDE [Concomitant]
     Active Substance: POTASSIUM CHLORIDE
     Dosage: UNK
     Dates: start: 20210908, end: 20211006
  44. POTASSIUM CHLORIDE [Concomitant]
     Active Substance: POTASSIUM CHLORIDE
     Dosage: UNK
     Dates: start: 20211208, end: 20211222
  45. POTASSIUM CHLORIDE [Concomitant]
     Active Substance: POTASSIUM CHLORIDE
     Dosage: UNK
     Dates: start: 20220105, end: 20220413
  46. ASPIRIN\GLYCINE [Concomitant]
     Active Substance: ASPIRIN\GLYCINE
     Indication: Prophylaxis
     Dosage: UNK
     Dates: start: 20220105
  47. ASPIRIN\GLYCINE [Concomitant]
     Active Substance: ASPIRIN\GLYCINE
     Dosage: UNK
     Dates: start: 20220427, end: 20220501
  48. KINITO [Concomitant]
     Indication: Vomiting
     Dosage: UNK
     Dates: start: 20220223, end: 20220307
  49. KINITO [Concomitant]
     Indication: Nausea
     Dosage: UNK
     Dates: start: 20220316
  50. NADROPARIN CALCIUM [Concomitant]
     Active Substance: NADROPARIN CALCIUM
     Indication: Prophylaxis
     Dosage: UNK
     Dates: start: 20210203, end: 20210203
  51. NADROPARIN CALCIUM [Concomitant]
     Active Substance: NADROPARIN CALCIUM
     Dosage: UNK
     Dates: start: 20210204, end: 20210526
  52. NADROPARIN CALCIUM [Concomitant]
     Active Substance: NADROPARIN CALCIUM
     Dosage: UNK
     Dates: start: 20211123, end: 20220104
  53. NADROPARIN CALCIUM [Concomitant]
     Active Substance: NADROPARIN CALCIUM
     Dosage: UNK
  54. NADROPARIN CALCIUM [Concomitant]
     Active Substance: NADROPARIN CALCIUM
     Dosage: UNK
     Dates: start: 20220428, end: 20220501
  55. SODIUM CHLORIDE [Concomitant]
     Active Substance: SODIUM CHLORIDE
     Indication: Plasma cell myeloma
     Dosage: UNK; SOLUTION
     Dates: start: 20210203, end: 20210203
  56. SODIUM CHLORIDE [Concomitant]
     Active Substance: SODIUM CHLORIDE
     Indication: Prophylaxis
     Dosage: UNK
     Dates: start: 20210210
  57. SODIUM CHLORIDE [Concomitant]
     Active Substance: SODIUM CHLORIDE
     Dosage: UNK
     Dates: start: 20210702, end: 20210704
  58. SODIUM CHLORIDE [Concomitant]
     Active Substance: SODIUM CHLORIDE
     Dosage: UNK
     Dates: start: 20210817, end: 20210817
  59. CLARITHROMYCIN [Concomitant]
     Active Substance: CLARITHROMYCIN
     Indication: C-reactive protein increased
     Dosage: UNK
     Dates: start: 20210224, end: 20210302
  60. CLARITHROMYCIN [Concomitant]
     Active Substance: CLARITHROMYCIN
     Indication: Pneumonia
     Dosage: UNK
     Dates: start: 20210826, end: 20210901
  61. LEVOFLOXACIN [Concomitant]
     Active Substance: LEVOFLOXACIN
     Indication: C-reactive protein increased
     Dosage: UNK
     Dates: start: 20210303, end: 20210310
  62. BISEPTOL [Concomitant]
     Active Substance: SULFAMETHOXAZOLE\TRIMETHOPRIM
     Indication: C-reactive protein increased
     Dosage: UNK
     Dates: start: 20210310, end: 20210323
  63. BISEPTOL [Concomitant]
     Active Substance: SULFAMETHOXAZOLE\TRIMETHOPRIM
     Indication: Prophylaxis
     Dosage: UNK
     Dates: start: 20210324, end: 20210616
  64. BISEPTOL [Concomitant]
     Active Substance: SULFAMETHOXAZOLE\TRIMETHOPRIM
     Dosage: UNK
     Dates: start: 20210810, end: 20210902
  65. BISEPTOL [Concomitant]
     Active Substance: SULFAMETHOXAZOLE\TRIMETHOPRIM
     Dosage: UNK
     Dates: start: 20210908, end: 20211111
  66. BISEPTOL [Concomitant]
     Active Substance: SULFAMETHOXAZOLE\TRIMETHOPRIM
     Dosage: UNK
     Dates: start: 20211123, end: 20211222
  67. FILGRASTIM [Concomitant]
     Active Substance: FILGRASTIM
     Indication: Plasma cell myeloma
     Dosage: UNK
     Dates: start: 20210324, end: 20210330
  68. FILGRASTIM [Concomitant]
     Active Substance: FILGRASTIM
     Indication: Prophylaxis
     Dosage: UNK
     Dates: start: 20210707, end: 20210712
  69. FILGRASTIM [Concomitant]
     Active Substance: FILGRASTIM
     Dosage: UNK
     Dates: start: 20210707, end: 20210711
  70. FILGRASTIM [Concomitant]
     Active Substance: FILGRASTIM
     Dosage: UNK
     Dates: start: 20210816, end: 20210822
  71. FILGRASTIM [Concomitant]
     Active Substance: FILGRASTIM
     Dosage: UNK
     Dates: start: 20211208, end: 20211208
  72. FILGRASTIM [Concomitant]
     Active Substance: FILGRASTIM
     Dosage: UNK
     Dates: start: 20220309, end: 20220309
  73. FILGRASTIM [Concomitant]
     Active Substance: FILGRASTIM
     Dosage: UNK
     Dates: start: 20220502, end: 20220502
  74. COVID-19 VACCINE [Concomitant]
     Indication: Immunisation
     Dosage: UNK FIRST DOSE
     Dates: start: 20210419, end: 20210419
  75. COVID-19 VACCINE [Concomitant]
     Dosage: UNK; SECOND DOSE
     Dates: start: 20210510, end: 20210510
  76. PANTOPRAZOLE SODIUM [Concomitant]
     Active Substance: PANTOPRAZOLE SODIUM
     Indication: Prophylaxis
     Dosage: UNK
     Dates: start: 20210702, end: 20210704
  77. PANTOPRAZOLE SODIUM [Concomitant]
     Active Substance: PANTOPRAZOLE SODIUM
     Dosage: UNK
     Dates: start: 20210806, end: 20210809
  78. PANTOPRAZOLE SODIUM [Concomitant]
     Active Substance: PANTOPRAZOLE SODIUM
     Dosage: UNK
     Dates: start: 20220428, end: 20220502
  79. FERANT [Concomitant]
     Indication: Prophylaxis
     Dosage: UNK
     Dates: start: 20210703, end: 20210704
  80. DEXAMETHASONE ACETATE [Concomitant]
     Active Substance: DEXAMETHASONE ACETATE
     Indication: Prophylaxis
     Dosage: UNK
     Dates: start: 20210703, end: 20210704
  81. DEXAMETHASONE ACETATE [Concomitant]
     Active Substance: DEXAMETHASONE ACETATE
     Dosage: UNK
     Dates: start: 20210810, end: 20210812
  82. METOCLOPRAMIDE HYDROCHLORIDE [Concomitant]
     Active Substance: METOCLOPRAMIDE HYDROCHLORIDE
     Indication: Prophylaxis
     Dosage: UNK;20 MINS BEFORE EATING
     Dates: start: 20210808, end: 20210809
  83. METOCLOPRAMIDE HYDROCHLORIDE [Concomitant]
     Active Substance: METOCLOPRAMIDE HYDROCHLORIDE
     Dosage: UNK
     Dates: start: 20210815, end: 20210829
  84. AKYNZEO [FOSNETUPITANT CHLORIDE HYDROCHLORIDE;PALONOSETRON HYDROCHLORI [Concomitant]
     Indication: Prophylaxis
     Dosage: UNK
     Dates: start: 20210810, end: 20210810
  85. OLPINAT [Concomitant]
     Indication: Prophylaxis
     Dosage: UNK
     Dates: start: 20210810, end: 20210812
  86. CALCIUM CHLORIDE\MAGNESIUM CHLORIDE\MALIC ACID\POTASSIUM CHLORIDE\SODI [Concomitant]
     Active Substance: CALCIUM CHLORIDE\MAGNESIUM CHLORIDE\MALIC ACID\POTASSIUM CHLORIDE\SODIUM ACETATE\SODIUM CHLORIDE
     Indication: Prophylaxis
     Dosage: UNK
     Dates: start: 20210812, end: 20210831
  87. CALCIUM CHLORIDE\MAGNESIUM CHLORIDE\MALIC ACID\POTASSIUM CHLORIDE\SODI [Concomitant]
     Active Substance: CALCIUM CHLORIDE\MAGNESIUM CHLORIDE\MALIC ACID\POTASSIUM CHLORIDE\SODIUM ACETATE\SODIUM CHLORIDE
     Dosage: UNK
     Dates: start: 20220427, end: 20220429
  88. MAGNESIUM SULFURICUM [Concomitant]
     Indication: Prophylaxis
     Dosage: UNK
     Dates: start: 20210812, end: 20210814
  89. CALCIUM GLUCONICUM [CALCIUM GLUCONATE] [Concomitant]
     Indication: Prophylaxis
     Dosage: UNK
     Dates: start: 20210812, end: 20210817
  90. ZOFRAN [Concomitant]
     Active Substance: ONDANSETRON HYDROCHLORIDE
     Indication: Prophylaxis
     Dosage: UNK
     Dates: start: 20210813, end: 20210814
  91. ZOFRAN [Concomitant]
     Active Substance: ONDANSETRON HYDROCHLORIDE
     Dosage: UNK
     Dates: start: 20210821, end: 20210825
  92. DEXAMETHASONE SODIUM PHOSPHATE [Concomitant]
     Active Substance: DEXAMETHASONE SODIUM PHOSPHATE
     Indication: Mucosal inflammation
     Dosage: UNK
     Dates: start: 20210815, end: 20210815
  93. DEXAMETHASONE SODIUM PHOSPHATE [Concomitant]
     Active Substance: DEXAMETHASONE SODIUM PHOSPHATE
     Indication: Plasma cell myeloma
     Dosage: UNK
     Dates: start: 20210818, end: 20210818
  94. DEXAMETHASONE SODIUM PHOSPHATE [Concomitant]
     Active Substance: DEXAMETHASONE SODIUM PHOSPHATE
     Dosage: UNK
     Dates: start: 20210820, end: 20210820
  95. BENZYDAMINE HYDROCHLORIDE [Concomitant]
     Active Substance: BENZYDAMINE HYDROCHLORIDE
     Indication: Prophylaxis
     Dosage: UNK; ON 23-AUG 2021 ONLY TWICE A DAY
     Dates: start: 20210816, end: 20210823
  96. BENZYDAMINE HYDROCHLORIDE [Concomitant]
     Active Substance: BENZYDAMINE HYDROCHLORIDE
     Dosage: UNK
     Dates: start: 20220403, end: 20220412
  97. POTASSIUM CHLORIDE [Concomitant]
     Active Substance: POTASSIUM CHLORIDE
     Indication: Prophylaxis
     Dosage: UNK
     Dates: start: 20210817, end: 20210901
  98. IMODIUM [Concomitant]
     Active Substance: LOPERAMIDE HYDROCHLORIDE
     Indication: Prophylaxis
     Dosage: UNK
     Dates: start: 20210819, end: 20210828
  99. CEFEPIME [Concomitant]
     Active Substance: CEFEPIME HYDROCHLORIDE
     Indication: Pneumonia
     Dosage: UNK;LAST DAY ONLY ONCE + SALINE SOLUTION 100ML
     Dates: start: 20210818, end: 20210822
  100. AMIKACIN [Concomitant]
     Active Substance: AMIKACIN
     Indication: Pneumonia
     Dosage: UNK
     Dates: start: 20210818, end: 20210821
  101. PLATELETS [Concomitant]
     Active Substance: HUMAN PLATELET, ALLOGENIC
     Indication: Plasma cell myeloma
     Dosage: UNK;TRANSFUSION;1TU
     Dates: start: 20210821, end: 20210821
  102. MEROPENEM [Concomitant]
     Active Substance: MEROPENEM
     Indication: Pneumonia
     Dosage: UNK;+ 100 ML SALINE SOLUTION;
     Dates: start: 20210822, end: 20210831
  103. ERDOSTEINE [Concomitant]
     Active Substance: ERDOSTEINE
     Indication: Pneumonia
     Dosage: UNK UNK, TID
     Dates: start: 20210823, end: 20210902
  104. FENOTEROL HYDROBROMIDE\IPRATROPIUM BROMIDE [Concomitant]
     Active Substance: FENOTEROL HYDROBROMIDE\IPRATROPIUM BROMIDE
     Indication: Pneumonia
     Dosage: UNK UNK, TID
     Dates: start: 20210823, end: 20210824
  105. HYDROCORTISONE [Concomitant]
     Active Substance: HYDROCORTISONE
     Indication: Pneumonia
     Dosage: UNK;+ 100 ML SALINE SOLUTION;
     Dates: start: 20210823, end: 20210824
  106. VENTOLIN [Concomitant]
     Active Substance: ALBUTEROL SULFATE
     Indication: Pneumonia
     Dosage: UNK;+ 3 ML SALINE SOLUTION
     Dates: start: 20210824, end: 20210824
  107. OXYGEN [Concomitant]
     Active Substance: OXYGEN
     Indication: Pneumonia
     Dosage: UNK
     Dates: start: 20210826, end: 20210828
  108. VANCOMYCIN HYDROCHLORIDE [Concomitant]
     Active Substance: VANCOMYCIN HYDROCHLORIDE
     Indication: Pneumonia
     Dosage: UNK;+ 250 ML SALINE SOLUTION
     Dates: start: 20210826, end: 20210901
  109. CODEINE [Concomitant]
     Active Substance: CODEINE
     Indication: Pneumonia
     Dosage: UNK
     Dates: start: 20210827, end: 20210901
  110. TORECAN [Concomitant]
     Active Substance: THIETHYLPERAZINE MALATE
     Indication: Prophylaxis
     Dosage: UNK
     Dates: start: 20210827, end: 20210827
  111. VORICONAZOLE [Concomitant]
     Active Substance: VORICONAZOLE
     Indication: Pneumonia
     Dosage: UNK
     Dates: start: 20210828, end: 20210918
  112. RACECADOTRIL [Concomitant]
     Active Substance: RACECADOTRIL
     Indication: Plasma cell myeloma
     Dosage: UNK
     Dates: start: 20210828, end: 20210829
  113. STOPTUSSIN [BUTAMIRATE CITRATE] [Concomitant]
     Indication: Pneumonia
     Dosage: UNK
     Dates: start: 20210830, end: 20210902
  114. BROMAZEPAM [Concomitant]
     Active Substance: BROMAZEPAM
     Indication: Prophylaxis
     Dosage: UNK
     Dates: start: 20210830, end: 20210830
  115. ALDACTONE [Concomitant]
     Active Substance: SPIRONOLACTONE
     Indication: Prophylaxis
     Dosage: UNK
     Dates: start: 20220427, end: 20220427
  116. SODIUM GLYCEROPHOSPHATE [Concomitant]
     Active Substance: SODIUM GLYCEROPHOSPHATE
     Indication: Plasma cell myeloma
     Dosage: UNK
     Dates: start: 20220404, end: 20220405
  117. FLUCONAZOLE [Concomitant]
     Active Substance: FLUCONAZOLE
     Indication: Oral candidiasis
  118. BISULEPIN [Concomitant]
     Active Substance: BISULEPIN
     Indication: Prophylaxis
     Dosage: UNK
     Dates: start: 20220308, end: 20220308
  119. POTASSIUM CHLORIDE [Concomitant]
     Active Substance: POTASSIUM CHLORIDE
     Indication: Plasma cell myeloma
     Dosage: UNK
     Dates: start: 20220404, end: 20220404
  120. FUROSEMIDE [Concomitant]
     Active Substance: FUROSEMIDE
     Indication: Prophylaxis
     Dosage: UNK
     Dates: start: 20220310, end: 20220310

REACTIONS (3)
  - Diarrhoea [Recovered/Resolved]
  - Salmonellosis [Recovered/Resolved]
  - Diarrhoea [Recovered/Resolved]

NARRATIVE: CASE EVENT DATE: 20220308
